FAERS Safety Report 10960455 (Version 1)
Quarter: 2015Q1

REPORT INFORMATION
  Report Type: Spontaneous
  Country: FR (occurrence: None)
  Receive Date: 20150325
  Receipt Date: 20150325
  Transmission Date: 20150721
  Serious: Yes (Hospitalization, Other)
  Sender: FDA-Public Use
  Company Number: SP09218

PATIENT
  Age: 82 Year
  Sex: Male

DRUGS (4)
  1. XIFAXAN [Suspect]
     Active Substance: RIFAXIMIN
     Indication: HEPATIC ENCEPHALOPATHY
     Dosage: 1100 MG (550 MG, 2 IN 1 D)
     Route: 048
     Dates: start: 20150114, end: 20150302
  2. NORFLOXACINE [Concomitant]
     Active Substance: NORFLOXACIN
  3. UROREC [Concomitant]
     Active Substance: SILODOSIN
  4. DUPHALAC [Concomitant]
     Active Substance: LACTULOSE

REACTIONS (2)
  - Clostridium difficile colitis [None]
  - Thrombocytopenia [None]

NARRATIVE: CASE EVENT DATE: 20150224
